FAERS Safety Report 6257525-6 (Version None)
Quarter: 2009Q3

REPORT INFORMATION
  Report Type: 
  Country: None (occurrence: None)
  Receive Date: 20090706
  Receipt Date: 20090701
  Transmission Date: 20100115
  Serious: Yes (Other)
  Sender: FDA-Public Use
  Company Number: JP-AVENTIS-200911859JP

PATIENT
  Age: 83 Year
  Sex: Female

DRUGS (5)
  1. LASIX [Suspect]
     Indication: RENAL FAILURE CHRONIC
     Route: 048
     Dates: end: 20090628
  2. ALDACTONE [Concomitant]
     Route: 048
  3. ALFAROL [Concomitant]
  4. AMLODIPINE [Concomitant]
  5. MIYA BM [Concomitant]

REACTIONS (1)
  - RASH PUSTULAR [None]
